FAERS Safety Report 9841723 (Version 1)
Quarter: 2013Q4

REPORT INFORMATION
  Report Type: Spontaneous
  Country: US (occurrence: None)
  Receive Date: 20131211
  Receipt Date: 20131211
  Transmission Date: 20140711
  Serious: Yes (Other)
  Sender: FDA-Public Use
  Company Number: ALL1-2012-02100

PATIENT
  Age: 18 Year
  Sex: Male
  Weight: 77.1 kg

DRUGS (1)
  1. VYVANSE (LISDEXAMFETAMINE DIMESYLATE) CAPSULE [Suspect]
     Indication: ATTENTION DEFICIT/HYPERACTIVITY DISORDER
     Dosage: 30 MG, 1X/DAY: QD: ORAL
     Route: 048
     Dates: start: 201101, end: 20110418

REACTIONS (3)
  - Blood pressure increased [None]
  - Tachycardia [None]
  - Dyskinesia [None]
